FAERS Safety Report 24387775 (Version 1)
Quarter: 2024Q4

REPORT INFORMATION
  Report Type: Spontaneous
  Country: US (occurrence: US)
  Receive Date: 20241002
  Receipt Date: 20241002
  Transmission Date: 20250115
  Serious: Yes (Other)
  Sender: UCB
  Company Number: US-UCBSA-2024036954

PATIENT
  Age: 30 Year
  Sex: Female
  Weight: 102.04 kg

DRUGS (6)
  1. CIMZIA [Suspect]
     Active Substance: CERTOLIZUMAB PEGOL
     Indication: Psoriasis
     Dosage: 400 MILLIGRAM, EV 2 WEEKS(QOW)
     Route: 058
     Dates: start: 20210501, end: 20240625
  2. PRENATAL S [Concomitant]
     Indication: Pregnancy
     Dosage: 1 SOFTGEL, ONCE DAILY (QD)
     Dates: start: 20211012, end: 20240720
  3. PRENATAL S [Concomitant]
     Indication: Breast feeding
  4. DULOXETINE [Concomitant]
     Active Substance: DULOXETINE
     Indication: Anxiety
     Dosage: 20 MILLIGRAM, ONCE DAILY (QD)
     Dates: start: 202306
  5. DULOXETINE [Concomitant]
     Active Substance: DULOXETINE
     Dosage: 30 MILLIGRAM, ONCE DAILY (QD)
     Dates: start: 202403
  6. ONDANSETRON [Concomitant]
     Active Substance: ONDANSETRON
     Indication: Nausea
     Dosage: 4 MILLIGRAM, EVERY 8 HRS DAILY
     Dates: start: 202111, end: 20220712

REACTIONS (4)
  - Hyperemesis gravidarum [Unknown]
  - Maternal exposure before pregnancy [Unknown]
  - Maternal exposure during pregnancy [Unknown]
  - Maternal exposure during breast feeding [Unknown]

NARRATIVE: CASE EVENT DATE: 20210928
